FAERS Safety Report 4626818-8 (Version None)
Quarter: 2005Q2

REPORT INFORMATION
  Report Type: 
  Country: None (occurrence: None)
  Receive Date: 20050401
  Receipt Date: 20050401
  Transmission Date: 20051028
  Serious: Yes (Hospitalization)
  Sender: FDA-Public Use
  Company Number: None

PATIENT
  Age: 69 Year
  Sex: Male
  Weight: 92 kg

DRUGS (1)
  1. GLYBURIDE [Suspect]
     Indication: DIABETES MELLITUS NON-INSULIN-DEPENDENT
     Dosage: 5 MG QDAY ORAL
     Route: 048

REACTIONS (5)
  - DRUG CLEARANCE DECREASED [None]
  - HYPOGLYCAEMIA [None]
  - INADEQUATE DIET [None]
  - MEDICATION ERROR [None]
  - RENAL IMPAIRMENT [None]
